FAERS Safety Report 6835725-1 (Version None)
Quarter: 2010Q3

REPORT INFORMATION
  Report Type: 
  Country: None (occurrence: None)
  Receive Date: 20100713
  Receipt Date: 20100701
  Transmission Date: 20110219
  Serious: Yes (Other)
  Sender: FDA-Public Use
  Company Number: US-PFIZER INC-2010083159

PATIENT
  Sex: Female
  Weight: 97.959 kg

DRUGS (2)
  1. SPIRONOLACTONE [Suspect]
     Indication: HYPERTENSION
     Dosage: 12.5 MG, DAILY
     Route: 048
     Dates: start: 20100627, end: 20100627
  2. ADVAIR DISKUS 100/50 [Concomitant]
     Dosage: UNK

REACTIONS (3)
  - AGITATION [None]
  - HYPERSENSITIVITY [None]
  - PSYCHOMOTOR HYPERACTIVITY [None]
